FAERS Safety Report 17580436 (Version 15)
Quarter: 2022Q3

REPORT INFORMATION
  Report Type: Report from Study
  Country: US (occurrence: US)
  Receive Date: 20200325
  Receipt Date: 20220928
  Transmission Date: 20221026
  Serious: Yes (Hospitalization, Other)
  Sender: FDA-Public Use
  Company Number: US-NOVARTISPH-NVSC2020US078086

PATIENT
  Age: 69 Year
  Sex: Female

DRUGS (4)
  1. ENTRESTO [Suspect]
     Active Substance: SACUBITRIL\VALSARTAN
     Indication: Chronic left ventricular failure
     Dosage: UNK , BID
     Route: 048
     Dates: start: 20200303
  2. ENTRESTO [Suspect]
     Active Substance: SACUBITRIL\VALSARTAN
     Indication: Cardiac failure congestive
     Dosage: 0.5 DOSAGE REGIMEN, BID (97/103 MG HALF TABLET IN THE MORNING AND HALF TABLET IN THE EVENING)
     Route: 048
  3. ENTRESTO [Suspect]
     Active Substance: SACUBITRIL\VALSARTAN
     Dosage: 1.5 DOSAGE FORM, BID (HALF TAB IN AM AND 1 TAB IN PM)
     Route: 048
  4. CARVEDILOL [Suspect]
     Active Substance: CARVEDILOL
     Indication: Product used for unknown indication
     Dosage: UNK (DOSE ADJUSTED)
     Route: 065

REACTIONS (17)
  - Septic shock [Unknown]
  - Pyrexia [Recovering/Resolving]
  - Head discomfort [Unknown]
  - Thyroid hormones increased [Unknown]
  - Sinus disorder [Not Recovered/Not Resolved]
  - COVID-19 [Unknown]
  - Illness [Unknown]
  - Nasopharyngitis [Unknown]
  - Weight decreased [Unknown]
  - Lethargy [Recovering/Resolving]
  - Fatigue [Unknown]
  - Hypotension [Not Recovered/Not Resolved]
  - Cough [Not Recovered/Not Resolved]
  - Dizziness [Recovering/Resolving]
  - Wrong technique in product usage process [Unknown]
  - Product dose omission issue [Unknown]
  - Incorrect dose administered [Unknown]

NARRATIVE: CASE EVENT DATE: 20200325
